FAERS Safety Report 7444005-5 (Version None)
Quarter: 2011Q2

REPORT INFORMATION
  Report Type: 
  Country: None (occurrence: None)
  Receive Date: 20110429
  Receipt Date: 20110420
  Transmission Date: 20111010
  Serious: No
  Sender: FDA-Public Use
  Company Number: US-BIOGENIDEC-2011BI015050

PATIENT
  Sex: Female

DRUGS (2)
  1. TYSABRI [Suspect]
     Indication: MULTIPLE SCLEROSIS
     Route: 042
     Dates: start: 20080611
  2. AVONEX [Concomitant]
     Indication: MULTIPLE SCLEROSIS
     Route: 030
     Dates: start: 20040402

REACTIONS (7)
  - MEMORY IMPAIRMENT [None]
  - BRONCHITIS [None]
  - PAIN IN EXTREMITY [None]
  - BACK PAIN [None]
  - PAIN [None]
  - MULTIPLE SCLEROSIS RELAPSE [None]
  - CHEST PAIN [None]
